FAERS Safety Report 10561779 (Version 1)
Quarter: 2014Q4

REPORT INFORMATION
  Report Type: Spontaneous
  Country: US (occurrence: US)
  Receive Date: 20141103
  Receipt Date: 20141103
  Transmission Date: 20150529
  Serious: No
  Sender: FDA-Public Use
  Company Number: US-009507513-1411USA000143

PATIENT
  Age: 24 Year
  Sex: Female
  Weight: 79.82 kg

DRUGS (3)
  1. ADVAIR HFA [Concomitant]
     Active Substance: FLUTICASONE PROPIONATE\SALMETEROL XINAFOATE
  2. NUVARING [Suspect]
     Active Substance: ETHINYL ESTRADIOL\ETONOGESTREL
     Indication: CONTRACEPTION
     Dosage: 3 WEEKS IN 1 WEEK OUT, ^6 WEEKS^
     Route: 067
     Dates: start: 20140918
  3. PROVENTIL [Concomitant]
     Active Substance: ALBUTEROL

REACTIONS (2)
  - Device expulsion [Unknown]
  - Inappropriate schedule of drug administration [Unknown]

NARRATIVE: CASE EVENT DATE: 20141029
